FAERS Safety Report 19350038 (Version 1)
Quarter: 2021Q2

REPORT INFORMATION
  Report Type: Spontaneous
  Country: CN (occurrence: CN)
  Receive Date: 20210531
  Receipt Date: 20210531
  Transmission Date: 20210717
  Serious: Yes (Other)
  Sender: FDA-Public Use
  Company Number: CN-LUPIN PHARMACEUTICALS INC.-2021-08270

PATIENT

DRUGS (2)
  1. ARBIDOL [Suspect]
     Active Substance: UMIFENOVIR
     Indication: COVID-19
     Dosage: UNK
     Route: 064
     Dates: start: 2020
  2. OSELTAMIVIR [Suspect]
     Active Substance: OSELTAMIVIR
     Indication: COVID-19
     Dosage: UNK
     Route: 064
     Dates: start: 2020

REACTIONS (15)
  - PO2 decreased [Unknown]
  - Blood lactate dehydrogenase increased [Unknown]
  - Fibrinogen degradation products increased [Unknown]
  - Gamma-glutamyltransferase increased [Unknown]
  - Blood bilirubin increased [Unknown]
  - Cardiac dysfunction [Unknown]
  - Prothrombin time shortened [Unknown]
  - Foetal exposure during pregnancy [Unknown]
  - Urine analysis abnormal [Unknown]
  - Fibrin D dimer increased [Unknown]
  - Oxygen saturation decreased [Unknown]
  - Blood creatine phosphokinase increased [Unknown]
  - Blood osmolarity decreased [Unknown]
  - Blood fibrinogen decreased [Unknown]
  - Antithrombin III decreased [Unknown]

NARRATIVE: CASE EVENT DATE: 2020
